FAERS Safety Report 5598323-6 (Version None)
Quarter: 2008Q1

REPORT INFORMATION
  Report Type: 
  Country: None (occurrence: None)
  Receive Date: 20080122
  Receipt Date: 20080111
  Transmission Date: 20080703
  Serious: Yes (Other)
  Sender: FDA-Public Use
  Company Number: B0493715A

PATIENT
  Age: 68 Year
  Sex: Male
  Weight: 54 kg

DRUGS (1)
  1. PAROXETINE [Suspect]
     Indication: MAJOR DEPRESSION
     Route: 048
     Dates: start: 20060613

REACTIONS (5)
  - ACTIVATION SYNDROME [None]
  - IMPULSIVE BEHAVIOUR [None]
  - IRRITABILITY [None]
  - LIBIDO INCREASED [None]
  - MANIA [None]
